FAERS Safety Report 10178106 (Version 1)
Quarter: 2014Q2

REPORT INFORMATION
  Report Type: Spontaneous
  Country: US (occurrence: US)
  Receive Date: 20140519
  Receipt Date: 20140519
  Transmission Date: 20141212
  Serious: Yes (Other)
  Sender: FDA-Public Use
  Company Number: US-DRREDDYS-USA/USA/14/0040355

PATIENT
  Age: 88 Year
  Sex: Male
  Weight: 92.98 kg

DRUGS (2)
  1. RANITIDINE TABLETS 150 MG OTC [Suspect]
     Indication: GASTROOESOPHAGEAL REFLUX DISEASE
     Route: 065
  2. RANITIDINE TABLETS 150 MG OTC [Suspect]
     Indication: DYSPEPSIA

REACTIONS (1)
  - Skin cancer [Unknown]
